FAERS Safety Report 13646963 (Version 2)
Quarter: 2017Q2

REPORT INFORMATION
  Report Type: Spontaneous
  Country: US (occurrence: US)
  Receive Date: 20170613
  Receipt Date: 20170616
  Transmission Date: 20170830
  Serious: Yes (Death)
  Sender: FDA-Public Use
  Company Number: US-PFIZER INC-2017256090

PATIENT
  Age: 62 Year
  Sex: Male

DRUGS (6)
  1. VINBLASTINE [Concomitant]
     Active Substance: VINBLASTINE
     Indication: EXTRAGONADAL PRIMARY GERM CELL TUMOUR
     Dosage: UNK UNK, CYCLIC
     Dates: start: 198409
  2. BLEOMYCIN SULFATE [Suspect]
     Active Substance: BLEOMYCIN SULFATE
     Dosage: UNK UNK, CYCLIC (3 COURSE, 180 UNITS)
     Dates: start: 198412
  3. CISPLATIN. [Concomitant]
     Active Substance: CISPLATIN
     Indication: EXTRAGONADAL PRIMARY GERM CELL TUMOUR
     Dosage: UNK UNK, CYCLIC
     Dates: start: 198409
  4. BLEOMYCIN SULFATE [Suspect]
     Active Substance: BLEOMYCIN SULFATE
     Indication: EXTRAGONADAL PRIMARY GERM CELL TUMOUR
     Dosage: UNK UNK, CYCLIC
     Dates: start: 198409
  5. DOXORUBICIN HCL [Concomitant]
     Active Substance: DOXORUBICIN HYDROCHLORIDE
     Indication: EXTRAGONADAL PRIMARY GERM CELL TUMOUR
     Dosage: UNK UNK, CYCLIC
     Dates: start: 198409
  6. ETOPOSIDE. [Concomitant]
     Active Substance: ETOPOSIDE
     Indication: EXTRAGONADAL PRIMARY GERM CELL TUMOUR
     Dosage: UNK UNK, CYCLIC
     Dates: start: 198409

REACTIONS (2)
  - Pneumothorax [Fatal]
  - Pulmonary fibrosis [Fatal]
